FAERS Safety Report 4619257-7 (Version None)
Quarter: 2005Q2

REPORT INFORMATION
  Report Type: 
  Country: None (occurrence: None)
  Receive Date: 20050321
  Receipt Date: 20020722
  Transmission Date: 20051028
  Serious: Yes (Other)
  Sender: FDA-Public Use
  Company Number: 2002-07-2162

PATIENT
  Age: 51 Year
  Sex: Male
  Weight: 72 kg

DRUGS (2)
  1. PEG-INTRON [Suspect]
     Indication: HEPATITIS C
     Dosage: 96 MCG QWK, SUBCUTANEOUS
     Route: 058
     Dates: start: 20020226
  2. REBETOL [Suspect]
     Indication: HEPATITIS C
     Dosage: 1000 MG QD ORAL
     Route: 048
     Dates: start: 20020226

REACTIONS (3)
  - AMNESIA [None]
  - HEARING IMPAIRED [None]
  - TINNITUS [None]
